FAERS Safety Report 19785519 (Version 1)
Quarter: 2021Q3

REPORT INFORMATION
  Report Type: Spontaneous
  Country: NL (occurrence: NL)
  Receive Date: 20210903
  Receipt Date: 20210903
  Transmission Date: 20211014
  Serious: Yes (Disabling)
  Sender: FDA-Public Use
  Company Number: NVSC2021NL195826

PATIENT
  Sex: Female
  Weight: 56 kg

DRUGS (3)
  1. PAROXETINE. [Suspect]
     Active Substance: PAROXETINE
     Indication: DEPRESSION
     Dosage: 30 MG, QD (30 MG PER DAG)
     Route: 065
     Dates: start: 201703, end: 20190516
  2. PAROXETINE. [Suspect]
     Active Substance: PAROXETINE
     Indication: ANXIETY
  3. QUETIAPINE. [Suspect]
     Active Substance: QUETIAPINE
     Indication: MALAISE
     Dosage: 25 MG, QD (PIL DOOR VIEREN DELEN) PER DAG
     Route: 065
     Dates: start: 2017

REACTIONS (2)
  - Electric shock sensation [Recovered/Resolved]
  - Fatigue [Recovering/Resolving]
